FAERS Safety Report 7646736-0 (Version None)
Quarter: 2011Q3

REPORT INFORMATION
  Report Type: 
  Country: None (occurrence: None)
  Receive Date: 20110801
  Receipt Date: 20110725
  Transmission Date: 20111222
  Serious: Yes (Death)
  Sender: FDA-Public Use
  Company Number: US-ASTELLAS-2011US002938

PATIENT
  Sex: Male

DRUGS (1)
  1. AMBISOME [Suspect]
     Indication: COCCIDIOIDOMYCOSIS
     Dosage: 400 MG, UID/QD
     Route: 042
     Dates: start: 20110108, end: 20110531

REACTIONS (1)
  - AORTIC RUPTURE [None]
